FAERS Safety Report 5321709-1 (Version None)
Quarter: 2007Q2

REPORT INFORMATION
  Report Type: 
  Country: None (occurrence: None)
  Receive Date: 20070510
  Receipt Date: 20070427
  Transmission Date: 20071010
  Serious: Yes (Other)
  Sender: FDA-Public Use
  Company Number: JP-PFIZER INC-2007028631

PATIENT
  Sex: Female

DRUGS (5)
  1. XALATAN [Suspect]
     Indication: NORMAL TENSION GLAUCOMA
     Route: 031
     Dates: start: 20060901, end: 20070324
  2. OXYBUPROCAINE HYDROCHLORIDE [Suspect]
     Dosage: TEXT:2-5 DROPS
     Route: 031
     Dates: end: 20070324
  3. SUNRYTHM [Concomitant]
     Route: 048
  4. RIZABEN [Concomitant]
     Dates: start: 20060519, end: 20061201
  5. FLUMETHOLON [Concomitant]
     Dates: start: 20060519, end: 20061201

REACTIONS (2)
  - ARRHYTHMIA [None]
  - EYE IRRITATION [None]
